FAERS Safety Report 5468529-5 (Version None)
Quarter: 2007Q3

REPORT INFORMATION
  Report Type: 
  Country: None (occurrence: None)
  Receive Date: 20070926
  Receipt Date: 20070823
  Transmission Date: 20080115
  Serious: No
  Sender: FDA-Public Use
  Company Number: US-BRISTOL-MYERS SQUIBB COMPANY-13886726

PATIENT
  Age: 85 Year
  Sex: Female
  Weight: 73 kg

DRUGS (6)
  1. ORENCIA [Suspect]
     Indication: RHEUMATOID ARTHRITIS
     Route: 042
  2. LANTUS [Concomitant]
  3. JANUVIA [Concomitant]
  4. LYRICA [Concomitant]
  5. VITAMINS [Concomitant]
  6. FISH OIL [Concomitant]

REACTIONS (1)
  - DRUG INEFFECTIVE [None]
